FAERS Safety Report 9696911 (Version 1)
Quarter: 2013Q4

REPORT INFORMATION
  Report Type: Spontaneous
  Country: US (occurrence: US)
  Receive Date: 20131119
  Receipt Date: 20131119
  Transmission Date: 20140711
  Serious: No
  Sender: FDA-Public Use
  Company Number: US-GILEAD-2007-0013983

PATIENT
  Sex: Male
  Weight: 104.33 kg

DRUGS (25)
  1. LETAIRIS [Suspect]
     Indication: PULMONARY ARTERIAL HYPERTENSION
     Route: 048
  2. LASIX [Concomitant]
     Route: 048
  3. HYDROCHLOROTHIAZIDE [Concomitant]
     Route: 048
  4. SINGULAIR [Concomitant]
     Route: 048
  5. COUMADIN [Concomitant]
     Route: 048
  6. GAS-X [Concomitant]
     Route: 048
  7. ZYRTEC [Concomitant]
     Route: 048
  8. NORVASC [Concomitant]
     Route: 048
  9. REVATIO [Concomitant]
     Route: 048
  10. TUMS [Concomitant]
     Route: 048
  11. COLCHICINE [Concomitant]
     Route: 048
  12. AVODART [Concomitant]
     Route: 048
  13. INDOMETHACIN [Concomitant]
     Route: 048
  14. RHINOCORT [Concomitant]
     Route: 055
  15. NEXIUM [Concomitant]
     Route: 048
  16. ALLOPURINOL [Concomitant]
     Route: 048
  17. ALTACE [Concomitant]
     Route: 048
  18. POTASSIUM CHLORIDE [Concomitant]
     Route: 048
  19. ASPIRIN [Concomitant]
     Route: 048
  20. MULTIVITAMIN [Concomitant]
     Route: 048
  21. FISH OIL [Concomitant]
     Route: 048
  22. SELENIUM [Concomitant]
     Route: 048
  23. TOPROL XL [Concomitant]
     Route: 048
  24. NIFEREX [Concomitant]
     Route: 048
  25. VIT B COMPLEX [Concomitant]
     Route: 048

REACTIONS (1)
  - Fluid retention [Unknown]
